FAERS Safety Report 8694497 (Version 3)
Quarter: 2012Q4

REPORT INFORMATION
  Report Type: 
  Country: US (occurrence: US)
  Receive Date: 20120731
  Receipt Date: 20120830
  Transmission Date: 20130627
  Serious: No
  Sender: FDA-Public Use
  Company Number: US-PFIZER INC-2012181036

PATIENT
  Age: 69 Year
  Sex: Female
  Weight: 101 kg

DRUGS (2)
  1. AROMASIN [Suspect]
     Indication: BREAST CANCER
     Dosage: 25 mg, daily
     Route: 048
     Dates: start: 2011, end: 2012
  2. TAMOXIFEN CITRATE [Suspect]
     Dosage: UNK
     Dates: start: 2002

REACTIONS (1)
  - Tumour marker increased [Not Recovered/Not Resolved]
